FAERS Safety Report 23570374 (Version 1)
Quarter: 2024Q1

REPORT INFORMATION
  Report Type: Spontaneous
  Country: US (occurrence: None)
  Receive Date: 20240226
  Receipt Date: 20240226
  Transmission Date: 20240409
  Serious: Yes (Other)
  Sender: FDA-Public Use
  Company Number: None

PATIENT
  Age: 57 Year
  Sex: Male
  Weight: 59.9 kg

DRUGS (22)
  1. TERIPARATIDE [Suspect]
     Active Substance: TERIPARATIDE
     Indication: Osteoporosis
     Dosage: FREQUENCY : DAILY;?
     Route: 058
     Dates: start: 20230817, end: 20240202
  2. OSTEO BI-FLEX TRIPLE STR TABLETS [Concomitant]
  3. PREZCOBIX 800MG-150MG TABLETS [Concomitant]
  4. ROPINIROLE [Concomitant]
     Active Substance: ROPINIROLE
  5. REXULTI 1MG TABLETS [Concomitant]
  6. TYRVAYA 0.03MG NASAL SPRAY [Concomitant]
  7. TESTOSTERONE CYP 200MG/ML MDV 10ML [Concomitant]
  8. CALCIUM + D 1200MG SOFTGELS [Concomitant]
  9. ALBUTEROL 0.083%(2.5MG/3ML) 60X3ML [Concomitant]
  10. ATORVASTATIN [Concomitant]
     Active Substance: ATORVASTATIN
  11. LAMOTRIGINE [Concomitant]
     Active Substance: LAMOTRIGINE
  12. MELOXICAM [Concomitant]
     Active Substance: MELOXICAM
  13. MIDODRINE [Concomitant]
     Active Substance: MIDODRINE
  14. COMBIVENT RESPIMAT ORAL 120SPRAY 4G [Concomitant]
  15. CYCLOSPORINE 0.05% OP SINGLE USE 30 [Concomitant]
  16. DIVALPROEX EXTENDED RELEASE 250MG T [Concomitant]
  17. FLUTICASONE/SALM DISK 250/50MCG 60S [Concomitant]
  18. GABAPENTIN [Concomitant]
     Active Substance: GABAPENTIN
  19. ACETAMINOPHEN\HYDROCODONE BITARTRATE [Concomitant]
     Active Substance: ACETAMINOPHEN\HYDROCODONE BITARTRATE
  20. LACOSAMIDE 50MG TABLETS [Concomitant]
  21. MECLIZINE 25MG RX TABLETS [Concomitant]
  22. MYTESI DR 125MG TABLETS [Concomitant]

REACTIONS (4)
  - Myalgia [None]
  - Poor peripheral circulation [None]
  - Mobility decreased [None]
  - Pain [None]

NARRATIVE: CASE EVENT DATE: 20240226
